FAERS Safety Report 4609362-3 (Version None)
Quarter: 2005Q1

REPORT INFORMATION
  Report Type: 
  Country: None (occurrence: None)
  Receive Date: 20050314
  Receipt Date: 20050301
  Transmission Date: 20050727
  Serious: Yes (Life-Threatening)
  Sender: FDA-Public Use
  Company Number: 2005039655

PATIENT
  Age: 68 Year
  Sex: Female
  Weight: 58 kg

DRUGS (3)
  1. CELEBREX [Suspect]
     Indication: RHEUMATOID ARTHRITIS
     Dosage: 200 MG, ORAL
     Route: 048
     Dates: start: 20010601
  2. LEFLUNOMIDE [Concomitant]
  3. CORTISONE ACETATE [Concomitant]

REACTIONS (1)
  - MYOCARDIAL INFARCTION [None]
